FAERS Safety Report 7198808-5 (Version None)
Quarter: 2010Q4

REPORT INFORMATION
  Report Type: 
  Country: None (occurrence: None)
  Receive Date: 20101227
  Receipt Date: 20101220
  Transmission Date: 20110411
  Serious: Yes (Other)
  Sender: FDA-Public Use
  Company Number: US-GENENTECH-311624

PATIENT

DRUGS (1)
  1. TNKASE [Suspect]
     Indication: CENTRAL VENOUS CATHETERISATION

REACTIONS (1)
  - DEEP VEIN THROMBOSIS [None]
